FAERS Safety Report 25349404 (Version 1)
Quarter: 2025Q2

REPORT INFORMATION
  Report Type: Spontaneous
  Country: US (occurrence: US)
  Receive Date: 20250522
  Receipt Date: 20250522
  Transmission Date: 20250717
  Serious: No
  Sender: BRACCO
  Company Number: US-BRACCO-2024US03140

PATIENT
  Sex: Male

DRUGS (1)
  1. LIQUID POLIBAR PLUS [Suspect]
     Active Substance: BARIUM SULFATE
     Indication: Diagnostic procedure
     Route: 054

REACTIONS (2)
  - Intentional product misuse [Unknown]
  - No adverse event [Unknown]
